FAERS Safety Report 8228289-1 (Version None)
Quarter: 2012Q1

REPORT INFORMATION
  Report Type: 
  Country: None (occurrence: None)
  Receive Date: 20120322
  Receipt Date: 20111011
  Transmission Date: 20120608
  Serious: No
  Sender: FDA-Public Use
  Company Number: US-BRISTOL-MYERS SQUIBB COMPANY-16153496

PATIENT
  Age: 73 Year
  Sex: Female
  Weight: 48 kg

DRUGS (2)
  1. VITAMIN TAB [Concomitant]
  2. ERBITUX [Suspect]

REACTIONS (2)
  - DRY SKIN [None]
  - SKIN FISSURES [None]
